FAERS Safety Report 8489718-1 (Version None)
Quarter: 2012Q3

REPORT INFORMATION
  Report Type: 
  Country: None (occurrence: None)
  Receive Date: 20120705
  Receipt Date: 20120627
  Transmission Date: 20120928
  Serious: Yes (Hospitalization)
  Sender: FDA-Public Use
  Company Number: JP-GLAXOSMITHKLINE-B0805329A

PATIENT
  Sex: Female
  Weight: 34 kg

DRUGS (18)
  1. TYKERB [Suspect]
     Dosage: 1000MG PER DAY
     Route: 048
     Dates: start: 20110421, end: 20110629
  2. LENDORMIN [Concomitant]
     Indication: INSOMNIA
     Route: 048
  3. ZOMETA [Concomitant]
     Route: 042
     Dates: start: 20110215, end: 20110215
  4. ZOMETA [Concomitant]
     Route: 042
     Dates: start: 20110317, end: 20110317
  5. ZOMETA [Concomitant]
     Indication: METASTASES TO BONE
     Route: 042
     Dates: start: 20101202, end: 20101202
  6. ZOMETA [Concomitant]
     Dosage: 3MG PER DAY
     Route: 042
     Dates: start: 20110908, end: 20110908
  7. TYKERB [Suspect]
     Dosage: 750MG PER DAY
     Route: 048
     Dates: start: 20110331, end: 20110420
  8. TYKERB [Suspect]
     Dosage: 1000MG PER DAY
     Route: 048
     Dates: start: 20110728, end: 20110929
  9. XELODA [Suspect]
     Dosage: 1200MG PER DAY
     Route: 048
     Dates: start: 20101125, end: 20110629
  10. LOXOPROFEN SODIUM [Concomitant]
     Indication: CANCER PAIN
     Route: 048
     Dates: start: 20101125, end: 20110601
  11. LOXOPROFEN SODIUM [Concomitant]
     Route: 048
     Dates: start: 20101125, end: 20110601
  12. DARBEPOETIN ALFA [Concomitant]
     Indication: ANAEMIA
     Route: 042
     Dates: start: 20110728, end: 20110818
  13. OXYCODONE HYDROCHLORIDE [Concomitant]
     Indication: TOOTHACHE
     Route: 048
     Dates: start: 20110916, end: 20110929
  14. TYKERB [Suspect]
     Indication: BREAST CANCER
     Dosage: 1250MG PER DAY
     Route: 048
     Dates: start: 20101125, end: 20110126
  15. TYKERB [Suspect]
     Dosage: 1000MG PER DAY
     Route: 048
     Dates: start: 20110127, end: 20110330
  16. DEXALTIN [Concomitant]
     Indication: STOMATITIS
     Route: 061
     Dates: start: 20101125, end: 20101215
  17. ZOMETA [Concomitant]
     Route: 042
     Dates: start: 20110106, end: 20110106
  18. ACETAMINOPHEN [Concomitant]
     Indication: TOOTHACHE
     Route: 048
     Dates: start: 20110602, end: 20110929

REACTIONS (3)
  - HYPOKALAEMIA [None]
  - DECREASED APPETITE [None]
  - RENAL DISORDER [None]
